FAERS Safety Report 11559779 (Version 1)
Quarter: 2015Q3

REPORT INFORMATION
  Report Type: Spontaneous
  Country: PL (occurrence: PL)
  Receive Date: 20150928
  Receipt Date: 20150928
  Transmission Date: 20151125
  Serious: Yes (Death, Hospitalization, Other)
  Sender: FDA-Public Use
  Company Number: PL-ACTAVIS-2015-20198

PATIENT
  Age: 32 Year
  Sex: Female

DRUGS (7)
  1. GANCICLOVIR. [Suspect]
     Active Substance: GANCICLOVIR
     Dosage: 7.5 MG/KG, BID
     Route: 042
     Dates: start: 20121206, end: 20121210
  2. TACROLIMUS (UNKNOWN) [Suspect]
     Active Substance: TACROLIMUS
     Indication: PROPHYLAXIS AGAINST TRANSPLANT REJECTION
     Dosage: UNK
     Route: 065
     Dates: start: 20120705, end: 20121210
  3. GANCICLOVIR. [Suspect]
     Active Substance: GANCICLOVIR
     Indication: CYTOMEGALOVIRUS INFECTION
     Dosage: 5 MG/KG, BID, EGFR-ADJUSTED DOSE
     Route: 042
     Dates: end: 20121206
  4. VALGANCICLOVIR [Suspect]
     Active Substance: VALGANCICLOVIR
     Indication: CYTOMEGALOVIRUS INFECTION
     Dosage: 900 MG, BID
     Route: 065
  5. LEFLUNOMIDE. [Suspect]
     Active Substance: LEFLUNOMIDE
     Indication: PROPHYLAXIS AGAINST TRANSPLANT REJECTION
     Dosage: 20 MG, BID
     Route: 048
  6. MYCOPHENOLATE MOFETIL (UNKNOWN) [Suspect]
     Active Substance: MYCOPHENOLATE MOFETIL
     Indication: PROPHYLAXIS AGAINST TRANSPLANT REJECTION
     Dosage: UNK
     Route: 065
  7. GANCICLOVIR. [Suspect]
     Active Substance: GANCICLOVIR
     Dosage: 5 MG/KG, BID, EGFR-ADJUSTED DOSE
     Route: 042
     Dates: start: 20121213, end: 20130409

REACTIONS (15)
  - Drug resistance [Unknown]
  - Acute hepatitis C [Not Recovered/Not Resolved]
  - Cytomegalovirus infection [Not Recovered/Not Resolved]
  - Seizure [Recovered/Resolved]
  - Hypotension [Unknown]
  - Diarrhoea [Not Recovered/Not Resolved]
  - Granulocytopenia [Unknown]
  - Multi-organ failure [Fatal]
  - Klebsiella infection [Unknown]
  - Thrombocytopenia [Unknown]
  - Pancytopenia [Unknown]
  - Drug level above therapeutic [Recovered/Resolved]
  - Enterococcal infection [Unknown]
  - Diabetes mellitus [Not Recovered/Not Resolved]
  - Leukopenia [Not Recovered/Not Resolved]

NARRATIVE: CASE EVENT DATE: 20121210
